FAERS Safety Report 9309361 (Version 1)
Quarter: 2013Q2

REPORT INFORMATION
  Report Type: Spontaneous
  Country: US (occurrence: US)
  Receive Date: 20130525
  Receipt Date: 20130525
  Transmission Date: 20140414
  Serious: No
  Sender: FDA-Public Use
  Company Number: US-BRISTOL-MYERS SQUIBB COMPANY-18728253

PATIENT
  Age: 71 Year
  Sex: Male

DRUGS (11)
  1. BYDUREON [Suspect]
     Indication: TYPE 2 DIABETES MELLITUS
     Dosage: ONGOING
     Route: 058
     Dates: start: 201302
  2. BYETTA [Suspect]
     Indication: TYPE 2 DIABETES MELLITUS
     Dosage: FEB13 10 MCG
     Route: 058
  3. METFORMIN HCL [Concomitant]
     Indication: TYPE 2 DIABETES MELLITUS
     Route: 048
  4. LEVEMIR [Concomitant]
     Indication: TYPE 2 DIABETES MELLITUS
     Dosage: EACH EVE
     Route: 058
  5. GLYBURIDE [Concomitant]
     Indication: TYPE 2 DIABETES MELLITUS
     Route: 048
  6. LIPITOR [Concomitant]
     Indication: BLOOD CHOLESTEROL
  7. ZETIA [Concomitant]
     Indication: BLOOD CHOLESTEROL
     Route: 048
  8. METOPROLOL [Concomitant]
     Indication: HYPERTENSION
  9. NORVASC [Concomitant]
     Indication: HYPERTENSION
  10. VALSARTAN + HCTZ [Concomitant]
     Indication: HYPERTENSION
  11. CIALIS [Concomitant]
     Route: 048

REACTIONS (5)
  - Injection site nodule [Recovering/Resolving]
  - Off label use [Not Recovered/Not Resolved]
  - Urine albumin/creatinine ratio increased [Recovering/Resolving]
  - Glycosylated haemoglobin increased [Unknown]
  - Weight decreased [Not Recovered/Not Resolved]
